FAERS Safety Report 16933818 (Version 1)
Quarter: 2019Q4

REPORT INFORMATION
  Report Type: Spontaneous
  Country: JP (occurrence: JP)
  Receive Date: 20191018
  Receipt Date: 20191018
  Transmission Date: 20200122
  Serious: Yes (Other)
  Sender: FDA-Public Use
  Company Number: JP-GLAXOSMITHKLINE-JP2019JPN095452

PATIENT
  Age: 42 Year
  Sex: Female

DRUGS (1)
  1. LAMICTAL [Suspect]
     Active Substance: LAMOTRIGINE
     Indication: BIPOLAR I DISORDER
     Dosage: UNK
     Route: 048

REACTIONS (9)
  - Rash [Recovering/Resolving]
  - Mucosal erosion [Unknown]
  - Stevens-Johnson syndrome [Recovering/Resolving]
  - Skin erosion [Unknown]
  - Oropharyngeal pain [Unknown]
  - Blister [Unknown]
  - Pyrexia [Unknown]
  - Mucocutaneous haemorrhage [Recovering/Resolving]
  - Enanthema [Recovering/Resolving]
